FAERS Safety Report 23224738 (Version 1)
Quarter: 2023Q4

REPORT INFORMATION
  Report Type: Spontaneous
  Country: CA (occurrence: CA)
  Receive Date: 20231124
  Receipt Date: 20231124
  Transmission Date: 20240109
  Serious: Yes (Death)
  Sender: FDA-Public Use
  Company Number: CA-TEVA-2023-CA-2948787

PATIENT
  Age: 36 Year
  Sex: Male

DRUGS (5)
  1. ARIPIPRAZOLE [Interacting]
     Active Substance: ARIPIPRAZOLE
     Indication: Product used for unknown indication
     Route: 065
  2. CLOZAPINE [Suspect]
     Active Substance: CLOZAPINE
     Indication: Product used for unknown indication
     Route: 065
  3. CATHINONE [Suspect]
     Active Substance: CATHINONE
     Indication: Product used for unknown indication
     Route: 065
  4. DILTIAZEM [Concomitant]
     Active Substance: DILTIAZEM
     Indication: Product used for unknown indication
  5. TOPIRAMATE [Concomitant]
     Active Substance: TOPIRAMATE
     Indication: Product used for unknown indication

REACTIONS (9)
  - Acute coronary syndrome [Fatal]
  - Arrhythmia [Fatal]
  - Cardiac failure acute [Fatal]
  - Foaming at mouth [Fatal]
  - Haematemesis [Fatal]
  - Seizure [Fatal]
  - Antipsychotic drug level above therapeutic [Fatal]
  - Potentiating drug interaction [Fatal]
  - Accidental death [Fatal]
